FAERS Safety Report 4595564-1 (Version None)
Quarter: 2005Q1

REPORT INFORMATION
  Report Type: 
  Country: None (occurrence: None)
  Receive Date: 20050224
  Receipt Date: 20050131
  Transmission Date: 20050727
  Serious: Yes (Hospitalization)
  Sender: FDA-Public Use
  Company Number: US_0405102953

PATIENT
  Age: 36 Year
  Sex: Male
  Weight: 109 kg

DRUGS (8)
  1. ZYPREXA [Suspect]
     Indication: SCHIZOPHRENIA
     Dosage: 30 MG/1 DAY
     Dates: start: 19980122, end: 20030717
  2. HALOPERIDOL [Concomitant]
  3. PAXIL [Concomitant]
  4. ACCUPRIL [Concomitant]
  5. SEROQUEL [Concomitant]
  6. ABILIFY [Concomitant]
  7. MULTI-VITAMIN [Concomitant]
  8. FOLATE SODIUM [Concomitant]

REACTIONS (19)
  - ABDOMINAL PAIN [None]
  - ANXIETY [None]
  - BLOOD CHOLESTEROL INCREASED [None]
  - BLOOD TRIGLYCERIDES INCREASED [None]
  - CHEST PAIN [None]
  - DECREASED APPETITE [None]
  - DIABETES MELLITUS INSULIN-DEPENDENT [None]
  - DIABETES MELLITUS NON-INSULIN-DEPENDENT [None]
  - GASTROENTERITIS [None]
  - HYPERTENSION [None]
  - NAUSEA [None]
  - OTITIS EXTERNA [None]
  - OTITIS MEDIA [None]
  - PRESCRIBED OVERDOSE [None]
  - REFUSAL OF TREATMENT BY PATIENT [None]
  - SPLENIC HAEMORRHAGE [None]
  - SPLENIC RUPTURE [None]
  - VOMITING [None]
  - WEIGHT INCREASED [None]
